FAERS Safety Report 8617137-3 (Version None)
Quarter: 2012Q3

REPORT INFORMATION
  Report Type: 
  Country: None (occurrence: None)
  Receive Date: 20120823
  Receipt Date: 20120817
  Transmission Date: 20120928
  Serious: Yes (Other)
  Sender: FDA-Public Use
  Company Number: US-PFIZER INC-2012202578

PATIENT
  Age: 83 Year
  Sex: Male
  Weight: 81.633 kg

DRUGS (5)
  1. AMIODARONE [Concomitant]
     Dosage: 400 MG, UNK
  2. METOPROLOL [Concomitant]
     Dosage: UNK
  3. NORVASC [Concomitant]
     Dosage: UNK
  4. LISINOPRIL [Concomitant]
     Dosage: UNK
  5. TOVIAZ [Suspect]
     Indication: NOCTURIA
     Dosage: 8 MG, 1X/DAY
     Route: 048
     Dates: start: 20120815, end: 20120816

REACTIONS (4)
  - DRY MOUTH [None]
  - DRUG INEFFECTIVE [None]
  - URINARY RETENTION [None]
  - DYSURIA [None]
